FAERS Safety Report 7438517-8 (Version None)
Quarter: 2011Q2

REPORT INFORMATION
  Report Type: 
  Country: None (occurrence: None)
  Receive Date: 20110426
  Receipt Date: 20110414
  Transmission Date: 20111010
  Serious: Yes (Hospitalization)
  Sender: FDA-Public Use
  Company Number: PHHY2011NL31887

PATIENT
  Sex: Male

DRUGS (3)
  1. ZOMETA [Suspect]
     Dosage: UNK
     Dates: start: 20110318
  2. ZOMETA [Suspect]
     Indication: PROSTATE CANCER METASTATIC
     Dosage: 4MG/5ML ONCE PER 28 DAYS
     Route: 042
     Dates: start: 20100928
  3. ZOMETA [Suspect]
     Dosage: UNK
     Dates: start: 20110227

REACTIONS (5)
  - LOCAL SWELLING [None]
  - ORAL PAIN [None]
  - WOUND [None]
  - FUNGAL INFECTION [None]
  - PAIN [None]
